FAERS Safety Report 5219150-5 (Version None)
Quarter: 2007Q1

REPORT INFORMATION
  Report Type: 
  Country: None (occurrence: None)
  Receive Date: 20070124
  Receipt Date: 20070124
  Transmission Date: 20070707
  Serious: Yes (Other)
  Sender: FDA-Public Use
  Company Number: None

PATIENT
  Age: 84 Year
  Sex: Male

DRUGS (1)
  1. AVASTIN [Suspect]
     Indication: MACULAR DEGENERATION
     Dosage: OPTHALMIC, INJECTION 1.25MG
     Route: 047
     Dates: start: 20060405, end: 20061103

REACTIONS (2)
  - IRIDOCYCLITIS [None]
  - IRITIS [None]
